FAERS Safety Report 9703348 (Version 1)
Quarter: 2013Q4

REPORT INFORMATION
  Report Type: Report from Study
  Country: DE (occurrence: DE)
  Receive Date: 20131122
  Receipt Date: 20131122
  Transmission Date: 20140711
  Serious: No
  Sender: FDA-Public Use
  Company Number: PHHY2013DE133316

PATIENT
  Sex: Female

DRUGS (2)
  1. AMN107 [Suspect]
     Indication: CHRONIC MYELOID LEUKAEMIA
     Dosage: 600 MG, PER DAY
     Route: 048
     Dates: start: 20130417
  2. L-THYROXIN [Concomitant]
     Dosage: 25 UG, UNK
     Dates: start: 20131114

REACTIONS (1)
  - Hypothyroidism [Not Recovered/Not Resolved]
